FAERS Safety Report 7114348-3 (Version None)
Quarter: 2010Q4

REPORT INFORMATION
  Report Type: 
  Country: None (occurrence: None)
  Receive Date: 20101119
  Receipt Date: 20101111
  Transmission Date: 20110411
  Serious: Yes (Hospitalization, Other)
  Sender: FDA-Public Use
  Company Number: US-ELI_LILLY_AND_COMPANY-US201011003575

PATIENT
  Sex: Female
  Weight: 76.644 kg

DRUGS (9)
  1. BYETTA [Suspect]
     Indication: TYPE 2 DIABETES MELLITUS
     Dosage: 5 UG, 2/D
     Route: 058
     Dates: start: 20050801, end: 20050901
  2. BYETTA [Suspect]
     Dosage: 10 UG, 2/D
     Route: 058
     Dates: start: 20050901
  3. TYLENOL-500 [Concomitant]
     Indication: PAIN
     Dates: start: 20101001
  4. METFORMIN HCL [Concomitant]
     Indication: TYPE 2 DIABETES MELLITUS
     Dosage: 1000 MG, 2/D
     Route: 048
  5. DIOVAN HCT [Concomitant]
     Indication: BLOOD PRESSURE
  6. ZOCOR [Concomitant]
     Indication: BLOOD CHOLESTEROL INCREASED
  7. CARTEOLOL HYDROCHLORIDE [Concomitant]
     Indication: GLAUCOMA
  8. RANITIDINE [Concomitant]
  9. FOLIC ACID [Concomitant]

REACTIONS (9)
  - CATARACT [None]
  - DIARRHOEA [None]
  - EYE HAEMORRHAGE [None]
  - INSOMNIA [None]
  - MEDICAL DEVICE COMPLICATION [None]
  - PROCEDURAL PAIN [None]
  - SKIN DISCOLOURATION [None]
  - VISUAL IMPAIRMENT [None]
  - VITREOUS FLOATERS [None]
